FAERS Safety Report 25732042 (Version 1)
Quarter: 2025Q3

REPORT INFORMATION
  Report Type: Spontaneous
  Country: JP (occurrence: JP)
  Receive Date: 20250827
  Receipt Date: 20250827
  Transmission Date: 20251021
  Serious: Yes (Death, Hospitalization)
  Sender: MYLAN
  Company Number: JP-MYLANLABS-2025M1071061

PATIENT
  Sex: Male

DRUGS (12)
  1. EPIPEN [Suspect]
     Active Substance: EPINEPHRINE
     Indication: Cardiac arrest
  2. EPIPEN [Suspect]
     Active Substance: EPINEPHRINE
     Route: 065
  3. EPIPEN [Suspect]
     Active Substance: EPINEPHRINE
     Route: 065
  4. EPIPEN [Suspect]
     Active Substance: EPINEPHRINE
  5. SODIUM CHLORIDE [Suspect]
     Active Substance: SODIUM CHLORIDE
     Indication: Resuscitation
  6. SODIUM CHLORIDE [Suspect]
     Active Substance: SODIUM CHLORIDE
     Route: 065
  7. SODIUM CHLORIDE [Suspect]
     Active Substance: SODIUM CHLORIDE
     Route: 065
  8. SODIUM CHLORIDE [Suspect]
     Active Substance: SODIUM CHLORIDE
  9. SODIUM BICARBONATE [Suspect]
     Active Substance: SODIUM BICARBONATE
     Indication: Cardiac arrest
  10. SODIUM BICARBONATE [Suspect]
     Active Substance: SODIUM BICARBONATE
     Route: 065
  11. SODIUM BICARBONATE [Suspect]
     Active Substance: SODIUM BICARBONATE
     Route: 065
  12. SODIUM BICARBONATE [Suspect]
     Active Substance: SODIUM BICARBONATE

REACTIONS (1)
  - Drug ineffective [Fatal]
